FAERS Safety Report 20633202 (Version 1)
Quarter: 2022Q1

REPORT INFORMATION
  Report Type: Report from Study
  Country: CZ (occurrence: CZ)
  Receive Date: 20220324
  Receipt Date: 20220324
  Transmission Date: 20220423
  Serious: Yes (Hospitalization, Congenital Anomaly, Other)
  Sender: FDA-Public Use
  Company Number: CZ-BAYER-2022A040168

PATIENT
  Sex: Female

DRUGS (1)
  1. BETAFERON [Suspect]
     Active Substance: INTERFERON BETA-1B
     Indication: Multiple sclerosis
     Dosage: 1 ML, QOD
     Route: 058
     Dates: start: 2015, end: 202203

REACTIONS (4)
  - Cardiac disorder [None]
  - Congenital heart valve disorder [None]
  - Multiple sclerosis [None]
  - Fatigue [None]

NARRATIVE: CASE EVENT DATE: 20210901
